FAERS Safety Report 4851024-1 (Version None)
Quarter: 2005Q4

REPORT INFORMATION
  Report Type: 
  Country: None (occurrence: None)
  Receive Date: 20051212
  Receipt Date: 20051003
  Transmission Date: 20060501
  Serious: Yes (Hospitalization, Disabling, Other)
  Sender: FDA-Public Use
  Company Number: US-MERCK-0510USA01982

PATIENT
  Age: 37 Year
  Sex: Female
  Weight: 86 kg

DRUGS (15)
  1. VIOXX [Suspect]
     Indication: ARTHRITIS
     Route: 048
     Dates: start: 20000601, end: 20010901
  2. ASPIRIN [Concomitant]
     Route: 065
  3. DILANTIN [Concomitant]
     Route: 065
  4. COUMADIN [Concomitant]
     Route: 065
  5. TRICOR [Concomitant]
     Route: 065
  6. COMBIVENT [Concomitant]
     Route: 065
  7. CELEBREX [Concomitant]
     Route: 065
  8. PHENYTEK [Concomitant]
     Route: 065
  9. OXYCONTIN [Concomitant]
     Route: 065
  10. HYDROCODONE BITARTRATE [Concomitant]
     Route: 065
  11. VALIUM [Concomitant]
     Route: 065
  12. LIPITOR [Concomitant]
     Route: 065
  13. NEURONTIN [Concomitant]
     Route: 065
  14. ZOLOFT [Concomitant]
     Route: 065
  15. PAXIL [Concomitant]
     Route: 065

REACTIONS (17)
  - ANXIETY [None]
  - ATELECTASIS [None]
  - CARDIOVASCULAR DISORDER [None]
  - CAROTID ANEURYSM RUPTURE [None]
  - CEREBRAL INFARCTION [None]
  - CEREBROVASCULAR ACCIDENT [None]
  - DEEP VEIN THROMBOSIS [None]
  - DEPRESSION [None]
  - DRUG TOXICITY [None]
  - HAEMATOMA [None]
  - HEPATIC STEATOSIS [None]
  - LERICHE SYNDROME [None]
  - MYOCARDIAL INFARCTION [None]
  - PERIPHERAL ISCHAEMIA [None]
  - PERIPHERAL VASCULAR DISORDER [None]
  - SUBARACHNOID HAEMORRHAGE [None]
  - SUBDURAL HAEMATOMA [None]
